FAERS Safety Report 8457031-4 (Version None)
Quarter: 2012Q2

REPORT INFORMATION
  Report Type: 
  Country: None (occurrence: None)
  Receive Date: 20120621
  Receipt Date: 20120614
  Transmission Date: 20120825
  Serious: Yes (Hospitalization)
  Sender: FDA-Public Use
  Company Number: US-PFIZER INC-2012144767

PATIENT
  Sex: Male
  Weight: 80.3 kg

DRUGS (7)
  1. DILANTIN [Suspect]
     Dosage: 100 MG, 3X/DAY
     Route: 048
  2. METOPROLOL [Concomitant]
     Indication: HYPERTENSION
     Dosage: 25 MG, 1X/DAY
     Route: 048
     Dates: start: 19910101, end: 20111030
  3. HYDROCHLOROTHIAZIDE [Concomitant]
     Indication: HYPERTENSION
     Dosage: 25 MG, 2X/DAY
     Route: 048
     Dates: start: 19910101, end: 20111030
  4. TEMAZEPAM [Concomitant]
     Indication: MYALGIA
     Dosage: 1 TABLET AS REQUIRED
     Route: 048
     Dates: start: 20111112
  5. VICODIN [Interacting]
     Dosage: UNK
  6. INSULIN [Concomitant]
     Indication: DIABETES MELLITUS
     Dosage: 7 UNIT TWICE DAILY
     Route: 058
     Dates: start: 20030101
  7. TYLENOL W/ CODEINE NO. 3 [Concomitant]
     Indication: HEADACHE
     Dosage: AS REQUIRED
     Route: 048
     Dates: start: 19960101

REACTIONS (20)
  - PROTHROMBIN TIME PROLONGED [None]
  - GAIT DISTURBANCE [None]
  - ALANINE AMINOTRANSFERASE INCREASED [None]
  - LETHARGY [None]
  - DYSSTASIA [None]
  - SUBSTANCE ABUSE [None]
  - TOXICITY TO VARIOUS AGENTS [None]
  - DRUG INTERACTION [None]
  - FALL [None]
  - ASPARTATE AMINOTRANSFERASE INCREASED [None]
  - BLOOD PRESSURE SYSTOLIC INCREASED [None]
  - HAEMATOCRIT DECREASED [None]
  - SLOW RESPONSE TO STIMULI [None]
  - HIGH DENSITY LIPOPROTEIN INCREASED [None]
  - BLOOD CALCIUM DECREASED [None]
  - ALTERED STATE OF CONSCIOUSNESS [None]
  - HYPERHIDROSIS [None]
  - WOUND [None]
  - BLOOD GLUCOSE INCREASED [None]
  - BLOOD SODIUM DECREASED [None]
